FAERS Safety Report 4737852-1 (Version None)
Quarter: 2005Q3

REPORT INFORMATION
  Report Type: 
  Country: None (occurrence: None)
  Receive Date: 20050802
  Receipt Date: 20050715
  Transmission Date: 20060218
  Serious: Yes (Other)
  Sender: FDA-Public Use
  Company Number: GBS050717942

PATIENT
  Sex: Male

DRUGS (14)
  1. DROTRECOGIN ALFA (ACTIVATED) [Suspect]
     Indication: SEPSIS
     Dates: start: 20050615, end: 20050619
  2. AMIODARONE [Concomitant]
  3. CIPROFLOXACIN [Concomitant]
  4. HYDROXYZINE [Concomitant]
  5. MIXTARD HUMAN (INSULIN HUMAN) [Concomitant]
  6. RAMIPRIL [Concomitant]
  7. METOPROLOL [Concomitant]
  8. SIMVASTATIN [Concomitant]
  9. ISOSORBIDE MONONITRATE [Concomitant]
  10. CLOPIDOGREL BISULFATE [Concomitant]
  11. ASPIRIN [Concomitant]
  12. ENOXAPARIN SODIUM [Concomitant]
  13. LANSOPRAZOLE [Concomitant]
  14. ALBUTEROL SULFATE HFA [Concomitant]

REACTIONS (4)
  - ATRIAL FIBRILLATION [None]
  - BLOOD AMYLASE INCREASED [None]
  - CHOLELITHIASIS [None]
  - KLEBSIELLA INFECTION [None]
